FAERS Safety Report 15827615 (Version 1)
Quarter: 2019Q1

REPORT INFORMATION
  Report Type: Report from Study
  Country: US (occurrence: US)
  Receive Date: 20190115
  Receipt Date: 20190115
  Transmission Date: 20190417
  Serious: Yes (Hospitalization)
  Sender: FDA-Public Use
  Company Number: PHHY2019US007423

PATIENT
  Age: 57 Year
  Sex: Female

DRUGS (1)
  1. GILENYA [Suspect]
     Active Substance: FINGOLIMOD HYDROCHLORIDE
     Indication: MULTIPLE SCLEROSIS
     Dosage: 0.5 MG, QD
     Route: 048
     Dates: start: 201504, end: 201609

REACTIONS (5)
  - Fatigue [Unknown]
  - Pneumonia [Recovered/Resolved]
  - Pyrexia [Unknown]
  - Asthenia [Unknown]
  - Human ehrlichiosis [Recovered/Resolved]

NARRATIVE: CASE EVENT DATE: 20170422
